FAERS Safety Report 6385977-X (Version None)
Quarter: 2009Q4

REPORT INFORMATION
  Report Type: 
  Country: None (occurrence: None)
  Receive Date: 20091002
  Receipt Date: 20090223
  Transmission Date: 20100525
  Serious: No
  Sender: FDA-Public Use
  Company Number: US-ASTRAZENECA-2009UW04944

PATIENT
  Age: 72 Year
  Sex: Male

DRUGS (2)
  1. ARIMIDEX [Suspect]
     Indication: BREAST CANCER
     Dosage: UNKNOWN
     Route: 048
  2. MANY [Concomitant]

REACTIONS (2)
  - AGGRESSION [None]
  - IRRITABILITY [None]
